FAERS Safety Report 5058141-4 (Version None)
Quarter: 2006Q3

REPORT INFORMATION
  Report Type: 
  Country: None (occurrence: None)
  Receive Date: 20060721
  Receipt Date: 20060711
  Transmission Date: 20061208
  Serious: Yes (Hospitalization)
  Sender: FDA-Public Use
  Company Number: DE-GLAXOSMITHKLINE-D0050283A

PATIENT
  Age: 66 Year
  Sex: Female
  Weight: 58 kg

DRUGS (6)
  1. HYCAMTIN [Suspect]
     Dosage: 340UG PER DAY
     Route: 042
     Dates: start: 20060606, end: 20060606
  2. PASPERTIN [Concomitant]
     Dosage: 2ML PER DAY
     Route: 042
     Dates: start: 20060606, end: 20060606
  3. ATROVENT [Concomitant]
     Route: 055
  4. GALACORDIN FORTE [Concomitant]
     Dosage: 700MG TWICE PER DAY
     Route: 048
  5. CARBOPLATIN [Concomitant]
     Route: 065
     Dates: start: 20050801, end: 20051201
  6. TAXOL [Concomitant]
     Route: 065
     Dates: start: 20050801, end: 20051201

REACTIONS (3)
  - LEUKOPENIA [None]
  - NEUTROPENIA [None]
  - SUBILEUS [None]
